FAERS Safety Report 10274358 (Version 2)
Quarter: 2015Q2

REPORT INFORMATION
  Report Type: Spontaneous
  Country: FR (occurrence: FR)
  Receive Date: 20140702
  Receipt Date: 20150626
  Transmission Date: 20150821
  Serious: Yes (Hospitalization, Other)
  Sender: FDA-Public Use
  Company Number: FR-UCBSA-2014003773

PATIENT
  Sex: Female

DRUGS (13)
  1. OMEPRAZOLE. [Concomitant]
     Active Substance: OMEPRAZOLE
     Dosage: UNK
     Dates: end: 20140513
  2. RENITEC 20MG, TABLET [Suspect]
     Active Substance: ENALAPRIL MALEATE
     Dosage: 1 DF, ONCE DAILY (QD)
     Route: 048
     Dates: end: 20140513
  3. CARDENSIEL [Concomitant]
     Active Substance: BISOPROLOL FUMARATE
     Dosage: 1CP IN THE MORNING
  4. XARELTO [Concomitant]
     Active Substance: RIVAROXABAN
     Dosage: UNK
     Dates: start: 20130517, end: 20140513
  5. INEXIUM [Concomitant]
     Active Substance: ESOMEPRAZOLE
     Dosage: UNK
     Dates: start: 20140513
  6. TARDYFERON [Concomitant]
     Active Substance: FERROUS SULFATE\FOLIC ACID
  7. IMOVANE [Concomitant]
     Active Substance: ZOPICLONE
     Dosage: 1 CP IN THE EVENING
  8. CORDARONE [Concomitant]
     Active Substance: AMIODARONE HYDROCHLORIDE
     Dosage: 1 CP PER DAY
  9. XYZALL [Suspect]
     Active Substance: LEVOCETIRIZINE DIHYDROCHLORIDE
     Dosage: 5 MG, ONCE DAILY (QD)
     Route: 048
     Dates: end: 20140513
  10. LEVOTHYROX [Concomitant]
     Active Substance: LEVOTHYROXINE
     Dosage: 1 CP IN THE MORNING
  11. SERESTA [Concomitant]
     Active Substance: OXAZEPAM
     Dosage: 1 CP IN THE EVENING
  12. ALDACTONE [Suspect]
     Active Substance: SPIRONOLACTONE
     Dosage: 0.5 DF, ONCE DAILY (QD)
     Route: 048
     Dates: end: 20140513
  13. LASILIX [Concomitant]
     Active Substance: FUROSEMIDE
     Dosage: 1CP IN THE MORNING 0.5CP AT NOON

REACTIONS (1)
  - Acute kidney injury [Not Recovered/Not Resolved]

NARRATIVE: CASE EVENT DATE: 2014
